FAERS Safety Report 24937170 (Version 2)
Quarter: 2025Q3

REPORT INFORMATION
  Report Type: Report from Study
  Country: US (occurrence: US)
  Receive Date: 20250206
  Receipt Date: 20250803
  Transmission Date: 20251021
  Serious: Yes (Hospitalization, Other)
  Sender: ALEXION PHARMACEUTICALS
  Company Number: US-AstraZeneca-CH-00798104A

PATIENT
  Sex: Female

DRUGS (1)
  1. SOLIRIS [Suspect]
     Active Substance: ECULIZUMAB
     Indication: Myasthenia gravis
     Route: 065

REACTIONS (7)
  - Fall [Unknown]
  - Foot fracture [Unknown]
  - Diabetes mellitus [Unknown]
  - Autoimmune disorder [Unknown]
  - Illness [Unknown]
  - Asthenia [Unknown]
  - Dehydration [Unknown]
